FAERS Safety Report 21917011 (Version 1)
Quarter: 2023Q1

REPORT INFORMATION
  Report Type: Spontaneous
  Country: None (occurrence: US)
  Receive Date: 20230126
  Receipt Date: 20230126
  Transmission Date: 20230417
  Serious: No
  Sender: FDA-Public Use
  Company Number: US-SmartPractice Denmark ApS-2137079

PATIENT
  Sex: Female

DRUGS (1)
  1. T.R.U.E. TEST (THIN-LAYER RAPID USE EPICUTANEOUS PATCH TEST) [Suspect]
     Active Substance: ALLERGEN PATCH TEST
     Route: 061

REACTIONS (5)
  - Paraesthesia [Unknown]
  - Burning sensation [Unknown]
  - Stomatitis [Unknown]
  - Rash [Unknown]
  - Pruritus [Unknown]
